FAERS Safety Report 12305569 (Version 1)
Quarter: 2016Q2

REPORT INFORMATION
  Report Type: Spontaneous
  Country: GB (occurrence: GB)
  Receive Date: 20160426
  Receipt Date: 20160426
  Transmission Date: 20160815
  Serious: Yes (Other)
  Sender: FDA-Public Use
  Company Number: GB-NOVOPROD-488305

PATIENT
  Age: 19 Year
  Sex: Male
  Weight: 87 kg

DRUGS (1)
  1. TRESIBA [Suspect]
     Active Substance: INSULIN DEGLUDEC
     Indication: DIABETES MELLITUS
     Dosage: UNK
     Route: 058
     Dates: start: 20140101, end: 20150901

REACTIONS (2)
  - Hypoglycaemia unawareness [Recovered/Resolved with Sequelae]
  - Hypoglycaemic seizure [Recovered/Resolved with Sequelae]
